FAERS Safety Report 14161008 (Version 1)
Quarter: 2017Q4

REPORT INFORMATION
  Report Type: Spontaneous
  Country: US (occurrence: US)
  Receive Date: 20171106
  Receipt Date: 20171106
  Transmission Date: 20180321
  Serious: Yes (Hospitalization, Other)
  Sender: FDA-Public Use
  Company Number: US-JNJFOC-20171101554

PATIENT
  Age: 88 Year
  Sex: Male

DRUGS (2)
  1. ANACIN NOS [Concomitant]
     Active Substance: ACETAMINOPHEN OR ACETAMINOPHEN\ASPIRIN\CAFFEINE OR ASPIRIN\CAFFEINE
  2. IBRUTINIB [Suspect]
     Active Substance: IBRUTINIB
     Indication: CHRONIC LYMPHOCYTIC LEUKAEMIA
     Dosage: INITIATED 22 MONTHS PRIOR TO MMS
     Route: 048

REACTIONS (2)
  - Ecchymosis [Recovered/Resolved]
  - Procedural haemorrhage [Recovered/Resolved]
